FAERS Safety Report 15990218 (Version 1)
Quarter: 2019Q1

REPORT INFORMATION
  Report Type: Spontaneous
  Country: US (occurrence: US)
  Receive Date: 20190221
  Receipt Date: 20190221
  Transmission Date: 20190418
  Serious: Yes (Disabling, Other)
  Sender: FDA-Public Use
  Company Number: US-BAUSCH-BL-2019-005211

PATIENT
  Sex: Female

DRUGS (1)
  1. VYZULTA [Suspect]
     Active Substance: LATANOPROSTENE BUNOD
     Indication: PRODUCT USED FOR UNKNOWN INDICATION
     Dosage: TAKING SAMPLES FOR 6 MONTHS
     Route: 065

REACTIONS (4)
  - Impaired work ability [Unknown]
  - Visual impairment [Unknown]
  - Retirement [Unknown]
  - Glaucoma [Unknown]
